FAERS Safety Report 10419120 (Version 1)
Quarter: 2014Q2

REPORT INFORMATION
  Report Type: Spontaneous
  Country: US (occurrence: None)
  Receive Date: 20140625
  Receipt Date: 20140625
  Transmission Date: 20141212
  Serious: No
  Sender: FDA-Public Use
  Company Number: A-NJ2014-97526

PATIENT
  Age: 58 Year
  Sex: Female

DRUGS (12)
  1. OPSUMIT [Suspect]
     Indication: PULMONARY ARTERIAL HYPERTENSION
     Route: 048
     Dates: start: 20140318
  2. SEROQUEL (QUETIAPINE FUMARATE) [Suspect]
     Dosage: QPM
     Dates: end: 20140328
  3. AMBIEN (ZOLPIDEM TARTRATE) [Concomitant]
  4. DIOVAN (VALSARTAN) [Concomitant]
  5. NORVASC (AMLODIPINE BESILATE) [Concomitant]
  6. REVATIO (SILDENAFIL CITRATE) [Concomitant]
  7. QUINAPRIL [Concomitant]
  8. METFORMIN [Concomitant]
  9. LASIX (FUROSEMIDE) [Concomitant]
  10. LASIX (FUROSEMIDE) [Concomitant]
  11. LANTUS (INSULIN GLARGINE) [Concomitant]
  12. NOVOLOG (INSULIN ASPART) [Concomitant]

REACTIONS (1)
  - Loss of consciousness [None]
